FAERS Safety Report 7637983-2 (Version None)
Quarter: 2011Q3

REPORT INFORMATION
  Report Type: 
  Country: None (occurrence: None)
  Receive Date: 20110720
  Receipt Date: 20110708
  Transmission Date: 20111222
  Serious: Yes (Other)
  Sender: FDA-Public Use
  Company Number: 2011000798

PATIENT
  Age: 71 Year
  Sex: Female

DRUGS (2)
  1. TARCEVA [Suspect]
  2. TARCEVA [Suspect]
     Indication: LUNG CARCINOMA CELL TYPE UNSPECIFIED STAGE 0
     Dosage: 150 MG, UID/QD, ORAL
     Route: 048
     Dates: start: 20101227

REACTIONS (5)
  - PNEUMONIA [None]
  - PROCEDURAL PAIN [None]
  - VERTIGO [None]
  - ARTHROPATHY [None]
  - HOT FLUSH [None]
